FAERS Safety Report 21734283 (Version 1)
Quarter: 2022Q4

REPORT INFORMATION
  Report Type: Spontaneous
  Country: US (occurrence: None)
  Receive Date: 20221214
  Receipt Date: 20221214
  Transmission Date: 20230113
  Serious: No
  Sender: FDA-Public Use
  Company Number: None

PATIENT
  Sex: Male

DRUGS (2)
  1. EVEROLIMUS [Suspect]
     Active Substance: EVEROLIMUS
     Dosage: 5MG DAILY SUBCUTANEOUS?
     Route: 058
  2. LENVIMA [Suspect]
     Active Substance: LENVATINIB

REACTIONS (2)
  - Vomiting [None]
  - Dehydration [None]
